FAERS Safety Report 18901166 (Version 3)
Quarter: 2022Q2

REPORT INFORMATION
  Report Type: Spontaneous
  Country: US (occurrence: US)
  Receive Date: 20210216
  Receipt Date: 20220411
  Transmission Date: 20220721
  Serious: No
  Sender: FDA-Public Use
  Company Number: US-PFIZER INC-2021132139

PATIENT
  Age: 81 Year
  Sex: Female
  Weight: 93.89 kg

DRUGS (1)
  1. VYNDAMAX [Suspect]
     Active Substance: TAFAMIDIS
     Indication: Atrial fibrillation
     Dosage: 61 MG, DAILY
     Route: 048
     Dates: start: 202103

REACTIONS (2)
  - Bradykinesia [Unknown]
  - Off label use [Unknown]

NARRATIVE: CASE EVENT DATE: 20210301
